FAERS Safety Report 7401075-8 (Version None)
Quarter: 2011Q2

REPORT INFORMATION
  Report Type: 
  Country: None (occurrence: None)
  Receive Date: 20110407
  Receipt Date: 20110311
  Transmission Date: 20111010
  Serious: No
  Sender: FDA-Public Use
  Company Number: US-B.I. PHARMACEUTICALS,INC./RIDGEFIELD-2011-BP-07869BP

PATIENT
  Sex: Male

DRUGS (9)
  1. ZOCOR [Concomitant]
     Dosage: 40 MG
     Route: 048
  2. METOPROLOL TARTRATE [Concomitant]
     Indication: ATRIAL FIBRILLATION
     Dosage: 25 MG
     Route: 048
  3. TRICOR [Concomitant]
     Dosage: 160 MG
     Route: 048
  4. PRADAXA [Suspect]
     Indication: ATRIAL FIBRILLATION
     Dosage: 300 MG
     Route: 048
     Dates: start: 20110208
  5. PROZAC [Concomitant]
     Dosage: 40 MG
     Route: 048
  6. LISINOPRIL [Concomitant]
     Indication: HYPERTENSION
     Route: 048
  7. DEPAKOTE [Concomitant]
     Indication: CONVULSION
     Dosage: 1500 MG
     Route: 048
  8. DIAZEPAM [Concomitant]
     Indication: ANXIETY
     Dosage: 5 MG
     Route: 048
  9. PRILOSEC [Concomitant]
     Indication: ABDOMINAL DISCOMFORT
     Dosage: 40 MG
     Route: 048

REACTIONS (3)
  - HALLUCINATION, AUDITORY [None]
  - HALLUCINATION [None]
  - AGGRESSION [None]
